FAERS Safety Report 5072715-6 (Version None)
Quarter: 2006Q3

REPORT INFORMATION
  Report Type: 
  Country: None (occurrence: None)
  Receive Date: 20060801
  Receipt Date: 20060724
  Transmission Date: 20061208
  Serious: Yes (Hospitalization)
  Sender: FDA-Public Use
  Company Number: 002#1#2006-00231

PATIENT
  Age: 50 Year
  Sex: Female

DRUGS (3)
  1. PARCOPA [Suspect]
     Dosage: 3 IN 1 D, ORAL
     Route: 048
     Dates: start: 20060701, end: 20060701
  2. CEFTRIAXONE SODIUM [Suspect]
     Dates: start: 20060101
  3. VANCOMYCIN [Concomitant]

REACTIONS (4)
  - AGRANULOCYTOSIS [None]
  - FLUID OVERLOAD [None]
  - NEUTROPHIL COUNT DECREASED [None]
  - PLATELET COUNT DECREASED [None]
